FAERS Safety Report 9369266 (Version 1)
Quarter: 2013Q2

REPORT INFORMATION
  Report Type: Spontaneous
  Country: MY (occurrence: None)
  Receive Date: 20130621
  Receipt Date: 20130621
  Transmission Date: 20140414
  Serious: Yes (Hospitalization)
  Sender: FDA-Public Use
  Company Number: 2013AP006128

PATIENT
  Age: 31 Year
  Sex: Male

DRUGS (1)
  1. QUETIAPINE (QUETIAPINE) [Suspect]
     Indication: SCHIZOPHRENIA
     Route: 048

REACTIONS (16)
  - Overdose [None]
  - Coma [None]
  - Sinus tachycardia [None]
  - Hyperglycaemia [None]
  - Hypotension [None]
  - Grand mal convulsion [None]
  - Dry mouth [None]
  - Mucosal dryness [None]
  - Pneumothorax [None]
  - Haematocrit decreased [None]
  - Blood sodium decreased [None]
  - Blood creatine phosphokinase increased [None]
  - Blood lactate dehydrogenase increased [None]
  - Aspartate aminotransferase increased [None]
  - Metabolic acidosis [None]
  - Haemodynamic instability [None]
